FAERS Safety Report 9416858 (Version 2)
Quarter: 2013Q3

REPORT INFORMATION
  Report Type: Spontaneous
  Country: US (occurrence: US)
  Receive Date: 20130724
  Receipt Date: 20130828
  Transmission Date: 20140515
  Serious: Yes (Hospitalization)
  Sender: FDA-Public Use
  Company Number: US-B.I. PHARMACEUTICALS,INC./RIDGEFIELD-2013-BI-21633BP

PATIENT
  Age: 87 Year
  Sex: Male

DRUGS (2)
  1. COMBIVENT [Suspect]
     Indication: CHRONIC OBSTRUCTIVE PULMONARY DISEASE
     Dosage: STRENGTH: 20 MCG/100 MCG ; DOSE: 160 MCG/80 MCG
     Route: 055
     Dates: start: 201306
  2. COMBIVENT [Suspect]
     Indication: CHRONIC OBSTRUCTIVE PULMONARY DISEASE
     Dosage: STRENGTH: 18 MCG/103 MCG ; DOSE: 72 MCG/824 MCG
     Route: 055
     Dates: start: 2008, end: 201306

REACTIONS (5)
  - Pneumonia bacterial [Recovered/Resolved]
  - Cough [Not Recovered/Not Resolved]
  - Drug effect decreased [Not Recovered/Not Resolved]
  - Overdose [Not Recovered/Not Resolved]
  - Product quality issue [Unknown]
